FAERS Safety Report 25118277 (Version 1)
Quarter: 2025Q1

REPORT INFORMATION
  Report Type: Spontaneous
  Country: IT (occurrence: IT)
  Receive Date: 20250325
  Receipt Date: 20250325
  Transmission Date: 20250408
  Serious: Yes (Death, Life-Threatening, Hospitalization, Other)
  Sender: ACCORD
  Company Number: IT-Accord-475434

PATIENT
  Age: 72 Year
  Sex: Female

DRUGS (6)
  1. BORTEZOMIB [Suspect]
     Active Substance: BORTEZOMIB
     Indication: Plasma cell leukaemia
     Dates: start: 202210, end: 202210
  2. CISPLATIN [Suspect]
     Active Substance: CISPLATIN
     Indication: Plasma cell leukaemia
     Dates: start: 202210, end: 202210
  3. ETOPOSIDE [Suspect]
     Active Substance: ETOPOSIDE
     Indication: Plasma cell leukaemia
     Dates: start: 202210, end: 202210
  4. DOXORUBICIN [Suspect]
     Active Substance: DOXORUBICIN
     Indication: Plasma cell leukaemia
     Dates: start: 202210, end: 202210
  5. CYCLOPHOSPHAMIDE [Suspect]
     Active Substance: CYCLOPHOSPHAMIDE
     Indication: Plasma cell leukaemia
     Dates: start: 202210, end: 202210
  6. DEXAMETHASONE [Suspect]
     Active Substance: DEXAMETHASONE
     Indication: Plasma cell leukaemia
     Dates: start: 202210, end: 202210

REACTIONS (4)
  - Off label use [Unknown]
  - Klebsiella infection [Fatal]
  - Septic shock [Fatal]
  - Multiple organ dysfunction syndrome [Fatal]

NARRATIVE: CASE EVENT DATE: 20221001
